FAERS Safety Report 10982995 (Version 1)
Quarter: 2015Q1

REPORT INFORMATION
  Report Type: Spontaneous
  Country: US (occurrence: None)
  Receive Date: 20150302
  Receipt Date: 20150302
  Transmission Date: 20150721
  Serious: No
  Sender: FDA-Public Use
  Company Number: M2014-030

PATIENT
  Age: 41 Year
  Sex: Female

DRUGS (8)
  1. ALLERGENIC EXTRACT- CANDIDA. [Suspect]
     Active Substance: ALLERGENIC EXTRACT- CANDIDA
     Indication: ALLERGY TEST
     Dosage: 0.50CC/INJECTION
     Dates: start: 20141002
  2. ASPERGILLUS NIGER VAR NIGER [Suspect]
     Active Substance: ASPERGILLUS NIGER VAR. NIGER
     Indication: ALLERGY TEST
     Dosage: 0.50CC/INJECTION
     Dates: start: 20141002
  3. ASPERGILLUS FUMIGATUS. [Suspect]
     Active Substance: ASPERGILLUS FUMIGATUS
     Indication: ALLERGY TEST
     Dosage: 0.50CC/INJECTION
     Dates: start: 20141002
  4. HELMINTHOSPORIUM [Suspect]
     Active Substance: COCHLIOBOLUS SATIVUS
     Indication: ALLERGY TEST
     Dosage: 0.50CC/INJECTION
     Dates: start: 20141002
  5. MOLDS, PENICILLIUM MIX [Suspect]
     Active Substance: CLONOSTACHYS ROSEA F. ROSEA\PENICILLIUM CHRYSOGENUM VAR. CHRYSOGENUM\PENICILLIUM DIGITATUM\PENICILLIUM EXPANSUM
     Indication: ALLERGY TEST
     Dosage: 0.50CC/INJECTION
     Dates: start: 20141002
  6. HORMODENDRUM CLADOSPORIOIDES [Suspect]
     Active Substance: CLADOSPORIUM CLADOSPORIOIDES
     Indication: ALLERGY TEST
     Dosage: 0.50CC/INJECTION
     Dates: start: 20141002
  7. FUSARIUM VASINFECTUM OXYSPORUM [Suspect]
     Active Substance: FUSARIUM OXYSPORUM VASINFECTUM
     Indication: ALLERGY TEST
     Dosage: 0.50CC/INJECTION
     Dates: start: 20141002
  8. ALTERNARIA TENUIS ALTERNATA [Suspect]
     Active Substance: ALTERNARIA ALTERNATA
     Indication: ALLERGY TEST
     Dosage: 0.50CC/INJECTION
     Dates: start: 20141002

REACTIONS (2)
  - Swelling [None]
  - Injection site warmth [None]

NARRATIVE: CASE EVENT DATE: 20141002
